FAERS Safety Report 21048321 (Version 2)
Quarter: 2022Q3

REPORT INFORMATION
  Report Type: Report from Study
  Country: US (occurrence: US)
  Receive Date: 20220706
  Receipt Date: 20220829
  Transmission Date: 20221027
  Serious: Yes (Hospitalization)
  Sender: FDA-Public Use
  Company Number: US-VERTEX PHARMACEUTICALS-2021-011162

PATIENT
  Sex: Male

DRUGS (35)
  1. TRIKAFTA [Suspect]
     Active Substance: ELEXACAFTOR\IVACAFTOR\TEZACAFTOR
     Indication: Cystic fibrosis
     Dosage: 2 ORANGE TABS IN AM AND 1 BLUE TAB IN PM
     Route: 048
     Dates: start: 20210624, end: 2022
  2. INTUNIV [Concomitant]
     Active Substance: GUANFACINE HYDROCHLORIDE
     Dosage: 1 MG
  3. ABILIFY [Concomitant]
     Active Substance: ARIPIPRAZOLE
     Dosage: 15 MG, 2MG
  4. ABILIFY [Concomitant]
     Active Substance: ARIPIPRAZOLE
     Dosage: 2 MG
  5. QUILLICHEW ER [Concomitant]
     Active Substance: METHYLPHENIDATE HYDROCHLORIDE
     Dosage: 20 MG, 40 MG
  6. RITALIN LA [Concomitant]
     Active Substance: METHYLPHENIDATE HYDROCHLORIDE
     Dosage: 10 MG, 5MG
  7. ADDERALL [Concomitant]
     Active Substance: AMPHETAMINE ASPARTATE\AMPHETAMINE SULFATE\DEXTROAMPHETAMINE SACCHARATE\DEXTROAMPHETAMINE SULFATE
     Dosage: 5 MG
  8. ALBUTEROL SULFATE [Concomitant]
     Active Substance: ALBUTEROL SULFATE
  9. ARIPIPRAZOLE [Concomitant]
     Active Substance: ARIPIPRAZOLE
     Dosage: 2 MG
  10. ESCITALOPRAM [Concomitant]
     Active Substance: ESCITALOPRAM OXALATE
     Dosage: 10 MG
  11. FLONASE ALLERGY RELIEF [Concomitant]
     Active Substance: FLUTICASONE PROPIONATE
     Dosage: 50 MICROGRAM
  12. GUANFACINE [Concomitant]
     Active Substance: GUANFACINE
     Dosage: 2 MG, 3MG
  13. GUANFACINE [Concomitant]
     Active Substance: GUANFACINE
     Dosage: 3 MG
  14. LEXAPRO [Concomitant]
     Active Substance: ESCITALOPRAM OXALATE
     Dosage: 5 MG
  15. LORATADINE [Concomitant]
     Active Substance: LORATADINE
     Dosage: 10 MG
  16. MIRTAZAPINE [Concomitant]
     Active Substance: MIRTAZAPINE
     Dosage: 15 MG
  17. OMEPRAZOLE [Concomitant]
     Active Substance: OMEPRAZOLE
  18. PERTZYE [Concomitant]
     Active Substance: PANCRELIPASE AMYLASE\PANCRELIPASE LIPASE\PANCRELIPASE PROTEASE
     Dosage: 16000 U, 24000 U
  19. PERTZYE [Concomitant]
     Active Substance: PANCRELIPASE AMYLASE\PANCRELIPASE LIPASE\PANCRELIPASE PROTEASE
     Dosage: 24000 U
  20. PULMOZYME [Concomitant]
     Active Substance: DORNASE ALFA
     Dosage: 1 MILLIGRAM PER MILLILITRE
  21. REMERON [Concomitant]
     Active Substance: MIRTAZAPINE
     Dosage: 15 MG
  22. RITALIN [Concomitant]
     Active Substance: METHYLPHENIDATE HYDROCHLORIDE
     Dosage: 5 MG
  23. RITALIN [Concomitant]
     Active Substance: METHYLPHENIDATE HYDROCHLORIDE
     Dosage: 10 UNK
  24. SINGULAIR [Concomitant]
     Active Substance: MONTELUKAST SODIUM
  25. SODIUM CHLORIDE [Concomitant]
     Active Substance: SODIUM CHLORIDE
     Route: 055
  26. VITAMIN D [Concomitant]
     Active Substance: VITAMIN D NOS
     Dosage: 400 UNIT
  27. ZYRTEC [Concomitant]
     Active Substance: CETIRIZINE HYDROCHLORIDE
     Dosage: 10 MG
  28. ALBUTEROL SULFATE [Concomitant]
     Active Substance: ALBUTEROL SULFATE
  29. MONTELUKAST SODIUM [Concomitant]
     Active Substance: MONTELUKAST SODIUM
  30. AMPHETAMINE [Concomitant]
     Active Substance: AMPHETAMINE
     Dosage: 10 MG
  31. AMPHETAMINE [Concomitant]
     Active Substance: AMPHETAMINE
     Dosage: 15MG
  32. DEXTROAMPHETAMINE [Concomitant]
     Active Substance: DEXTROAMPHETAMINE
     Dosage: 15 MG, 20 MG
  33. DEXTROAMPHETAMINE [Concomitant]
     Active Substance: DEXTROAMPHETAMINE
     Dosage: 20MG
  34. DEXMETHYLPHENIDATE [Concomitant]
     Active Substance: DEXMETHYLPHENIDATE
     Dosage: 20 MG
  35. TRAZODONE [Concomitant]
     Active Substance: TRAZODONE HYDROCHLORIDE
     Dosage: 150 MG

REACTIONS (8)
  - Obsessive-compulsive disorder [Not Recovered/Not Resolved]
  - Attention deficit hyperactivity disorder [Not Recovered/Not Resolved]
  - Impulsive behaviour [Not Recovered/Not Resolved]
  - Increased appetite [Unknown]
  - Behaviour disorder [Not Recovered/Not Resolved]
  - Aggression [Not Recovered/Not Resolved]
  - Agitation [Not Recovered/Not Resolved]
  - Body mass index increased [Not Recovered/Not Resolved]

NARRATIVE: CASE EVENT DATE: 20210101
